FAERS Safety Report 6817629-3 (Version None)
Quarter: 2010Q3

REPORT INFORMATION
  Report Type: 
  Country: None (occurrence: None)
  Receive Date: 20100706
  Receipt Date: 20100625
  Transmission Date: 20110219
  Serious: Yes (Other)
  Sender: FDA-Public Use
  Company Number: US-JNJFOC-20100608252

PATIENT
  Sex: Male

DRUGS (5)
  1. REMICADE [Suspect]
     Indication: CROHN'S DISEASE
     Dosage: 1DOSE ONLY
     Route: 042
  2. REMICADE [Suspect]
     Dosage: 1DOSE ONLY
     Route: 042
  3. REMICADE [Suspect]
     Dosage: 1DOSE ONLY
     Route: 042
  4. APAP TAB [Concomitant]
     Indication: PREMEDICATION
     Route: 048
  5. BENADRYL [Concomitant]
     Indication: PREMEDICATION
     Route: 048

REACTIONS (9)
  - ARTHRALGIA [None]
  - BACK PAIN [None]
  - CHEST DISCOMFORT [None]
  - CYANOSIS [None]
  - INFUSION RELATED REACTION [None]
  - NAUSEA [None]
  - PALLOR [None]
  - SENSORY DISTURBANCE [None]
  - TREMOR [None]
